FAERS Safety Report 20297833 (Version 1)
Quarter: 2022Q1

REPORT INFORMATION
  Report Type: Spontaneous
  Country: US (occurrence: None)
  Receive Date: 20220105
  Receipt Date: 20220105
  Transmission Date: 20220424
  Serious: No
  Sender: FDA-Public Use
  Company Number: US-ROCHE-2742443

PATIENT

DRUGS (2)
  1. ACTIVASE [Suspect]
     Active Substance: ALTEPLASE
     Indication: Arterial occlusive disease
     Dosage: BOLUS DOSE, DILUTED ACTIVASE 25 MG IN 250 ML OF NORMAL SALINE 1:1, THEN DILUTED FURTHER INTO 250 ML
     Route: 013
     Dates: start: 20201229
  2. ACTIVASE [Suspect]
     Active Substance: ALTEPLASE
     Indication: Peripheral artery occlusion

REACTIONS (3)
  - Intentional product use issue [Unknown]
  - Off label use [Unknown]
  - No adverse event [Unknown]
